FAERS Safety Report 16372880 (Version 2)
Quarter: 2019Q2

REPORT INFORMATION
  Report Type: Spontaneous
  Country: BG (occurrence: BG)
  Receive Date: 20190530
  Receipt Date: 20190614
  Transmission Date: 20190711
  Serious: Yes (Death, Other)
  Sender: FDA-Public Use
  Company Number: BG-BAYER-2019-102412

PATIENT
  Age: 55 Year
  Sex: Male

DRUGS (4)
  1. STIVARGA [Suspect]
     Active Substance: REGORAFENIB
     Indication: COLORECTAL CANCER
     Dosage: 80 MG, QD
     Dates: start: 20190204, end: 201902
  2. STIVARGA [Suspect]
     Active Substance: REGORAFENIB
     Indication: COLORECTAL CANCER
     Dosage: 120 MG, QD
     Dates: start: 201903, end: 20190326
  3. STIVARGA [Suspect]
     Active Substance: REGORAFENIB
     Indication: COLORECTAL CANCER
     Dosage: 160 MG, QD
     Dates: start: 201902, end: 201903
  4. STIVARGA [Suspect]
     Active Substance: REGORAFENIB
     Indication: COLORECTAL CANCER
     Dosage: 120 MG, QD
     Dates: start: 20190204, end: 201902

REACTIONS (18)
  - Abdominal lymphadenopathy [None]
  - Ascites [Not Recovered/Not Resolved]
  - Pruritus [Not Recovered/Not Resolved]
  - Asthenia [None]
  - Weight decreased [Not Recovered/Not Resolved]
  - Pleural effusion [None]
  - Decreased appetite [None]
  - Decreased appetite [Not Recovered/Not Resolved]
  - Colorectal cancer [None]
  - Pericardial effusion [None]
  - Fatigue [Not Recovered/Not Resolved]
  - Abdominal pain upper [Not Recovered/Not Resolved]
  - Jaundice [Not Recovered/Not Resolved]
  - Renal vein thrombosis [None]
  - Hepatic failure [Not Recovered/Not Resolved]
  - Fatigue [None]
  - Death [Fatal]
  - Asthenia [Not Recovered/Not Resolved]

NARRATIVE: CASE EVENT DATE: 201903
